FAERS Safety Report 6524515-5 (Version None)
Quarter: 2010Q1

REPORT INFORMATION
  Report Type: 
  Country: None (occurrence: None)
  Receive Date: 20100104
  Receipt Date: 20091228
  Transmission Date: 20100710
  Serious: Yes (Death, Hospitalization)
  Sender: FDA-Public Use
  Company Number: IT-BRISTOL-MYERS SQUIBB COMPANY-14912992

PATIENT
  Age: 76 Year
  Sex: Male

DRUGS (7)
  1. COUMADIN [Suspect]
     Indication: ATRIAL FIBRILLATION
     Dosage: INTERRUPTED ON 28OCT09 DURATION:1 YEAR
  2. METOPROLOL TARTRATE [Concomitant]
     Route: 048
  3. FUROSEMIDE [Concomitant]
     Dosage: TABS
     Route: 048
  4. AMIODARONE HCL [Concomitant]
     Dosage: TABS
     Route: 048
  5. KANRENOL [Concomitant]
     Dosage: TABS
     Route: 048
  6. ASPIRIN [Concomitant]
     Dosage: TABS
     Route: 048
  7. ANTRA [Concomitant]
     Dosage: ANTRA (OMEPRAZOLE) MODIFIED RELEASE 20 MG ORAL CAPS
     Route: 048

REACTIONS (3)
  - CEREBRAL HAEMATOMA [None]
  - CIRCULATORY COLLAPSE [None]
  - MULTI-ORGAN FAILURE [None]
